FAERS Safety Report 6062292-5 (Version None)
Quarter: 2009Q1

REPORT INFORMATION
  Report Type: 
  Country: None (occurrence: None)
  Receive Date: 20090203
  Receipt Date: 20090129
  Transmission Date: 20090719
  Serious: Yes (Other)
  Sender: FDA-Public Use
  Company Number: US-BRISTOL-MYERS SQUIBB COMPANY-14487631

PATIENT
  Age: 72 Year
  Sex: Female
  Weight: 76 kg

DRUGS (12)
  1. COUMADIN [Suspect]
     Indication: THROMBOSIS
     Dosage: FOR 5-6 MONTHS;VARIED BETWEEN 5-6MG DEPENDING ON PT/INR
     Dates: start: 20040101
  2. SPIRONOLACTONE [Concomitant]
     Dosage: AS NEEDED
     Dates: start: 19830101
  3. METHYLIN [Concomitant]
     Dates: start: 19920101
  4. PROPRANOLOL [Concomitant]
  5. LYRICA [Concomitant]
     Dosage: STARTED AS BID DOSE.
     Dates: start: 20080101
  6. LIPITOR [Concomitant]
  7. LOVASTATIN [Concomitant]
  8. DARVOCET [Concomitant]
     Indication: PAIN
     Dosage: 1 DF=100-650 TABS.ONCE OR MORE DAILY
  9. TYLENOL [Concomitant]
     Dosage: 1 DOSAGE FORM=2 TABS, STRENGTH-500 MG.AS NEEDED
  10. DILTIAZEM [Concomitant]
     Indication: HYPERTENSION
  11. NITROGLYCERIN [Concomitant]
     Dosage: SLOW CAPS;TAKEN FOR MANY YEARS, STOPPED IN FALL 2008.
     Dates: end: 20080101
  12. NITROSTAT [Concomitant]

REACTIONS (4)
  - BLOOD PRESSURE DECREASED [None]
  - FALL [None]
  - INTERVERTEBRAL DISC PROTRUSION [None]
  - NEOPLASM [None]
